FAERS Safety Report 7717145-0 (Version None)
Quarter: 2011Q3

REPORT INFORMATION
  Report Type: 
  Country: None (occurrence: None)
  Receive Date: 20110826
  Receipt Date: 20110826
  Transmission Date: 20111222
  Serious: Yes (Other)
  Sender: FDA-Public Use
  Company Number: None

PATIENT
  Sex: Male

DRUGS (1)
  1. AVONEX [Suspect]
     Dosage: 30 MCG QWEEK IM
     Route: 030
     Dates: start: 20110324

REACTIONS (1)
  - INFLUENZA LIKE ILLNESS [None]
